FAERS Safety Report 23995500 (Version 1)
Quarter: 2024Q2

REPORT INFORMATION
  Report Type: Spontaneous
  Country: US (occurrence: None)
  Receive Date: 20240620
  Receipt Date: 20240620
  Transmission Date: 20240716
  Serious: Yes (Other)
  Sender: FDA-Public Use
  Company Number: US-INFO-20240097

PATIENT

DRUGS (1)
  1. NOREPINEPHRINE [Suspect]
     Active Substance: NOREPINEPHRINE\NOREPINEPHRINE BITARTRATE
     Dosage: LOT #: UNKNOWN TO CALLER?EXPIRY DATE: UNKNOWN TO CALLER?CARTON SERIAL NUMBER, IF AVAILABLE: UNKNO...
     Dates: start: 202403, end: 202403

REACTIONS (2)
  - Product packaging issue [Unknown]
  - Adverse event [Unknown]

NARRATIVE: CASE EVENT DATE: 20240301
